FAERS Safety Report 17724946 (Version 6)
Quarter: 2021Q3

REPORT INFORMATION
  Report Type: Report from Study
  Country: AU (occurrence: AU)
  Receive Date: 20200429
  Receipt Date: 20210708
  Transmission Date: 20211014
  Serious: Yes (Other)
  Sender: FDA-Public Use
  Company Number: AU-SHIONOGI, INC-2020000259

PATIENT
  Age: 80 Year
  Sex: Female
  Weight: 78 kg

DRUGS (32)
  1. DOCUSATE?SENNA [Concomitant]
     Indication: FAECES SOFT
     Dosage: 50MG?8MG
     Route: 048
     Dates: start: 2014
  2. LERCANIDIPINE [Concomitant]
     Active Substance: LERCANIDIPINE
     Indication: HYPERTENSION
     Dosage: NIGHT
     Route: 048
     Dates: start: 2014, end: 20200416
  3. MACROGOL [Concomitant]
     Active Substance: POLYETHYLENE GLYCOLS
     Route: 048
  4. TAZOBACTAM SODIUM AND PIPERACILLIN SODIUM [Concomitant]
     Active Substance: PIPERACILLIN SODIUM\TAZOBACTAM SODIUM
     Dosage: UNK
     Route: 042
     Dates: start: 20200312, end: 20200319
  5. FRUSEMIDE ALMUS [Concomitant]
     Indication: HYPERTENSION
     Dosage: 40 MG, QD
     Route: 065
     Dates: start: 20200421
  6. ESOMEPRAZOLE. [Concomitant]
     Active Substance: ESOMEPRAZOLE MAGNESIUM
     Indication: GASTROOESOPHAGEAL REFLUX DISEASE
     Dosage: 20 MG, 1 PER 12 HOUR
     Route: 048
     Dates: start: 20200312, end: 20200422
  7. LERCANIDIPINE [Concomitant]
     Active Substance: LERCANIDIPINE
     Dosage: 20 MG, QD
     Route: 048
     Dates: start: 20200416
  8. PREGABALIN. [Concomitant]
     Active Substance: PREGABALIN
     Dosage: MORNING, NIGHT
     Route: 048
     Dates: start: 20200222
  9. CEFTRIAXONE. [Concomitant]
     Active Substance: CEFTRIAXONE
     Indication: WOUND INFECTION
     Dosage: ON DAYS 10 TO 13
     Route: 042
  10. TIGECYCLINE. [Concomitant]
     Active Substance: TIGECYCLINE
     Dosage: 50 MG, BID
     Route: 042
  11. ENOXAPARIN [Concomitant]
     Active Substance: ENOXAPARIN
     Indication: THROMBOSIS PROPHYLAXIS
     Dosage: NIGHT
     Route: 058
     Dates: start: 20200210, end: 20200418
  12. PRAZOSIN. [Concomitant]
     Active Substance: PRAZOSIN
     Indication: HYPERTENSION
     Dosage: 2 MG, TID
     Route: 065
     Dates: start: 20200429
  13. CEFIDEROCOL. [Suspect]
     Active Substance: CEFIDEROCOL
     Indication: ACINETOBACTER INFECTION
     Dosage: 1.5 G, 1 PER 8 HOUR
     Route: 041
     Dates: start: 20200319, end: 20200330
  14. CEFIDEROCOL. [Suspect]
     Active Substance: CEFIDEROCOL
     Dosage: 2 G, 1 PER 8 HOUR
     Route: 041
     Dates: start: 20200331, end: 20200413
  15. CALCIUM CARBONATE. [Concomitant]
     Active Substance: CALCIUM CARBONATE
     Indication: OSTEOPOROSIS
     Dosage: 600MG 2 TABS 6 TIMES PER WEEK (EXCEPT ON FRI)
     Route: 048
     Dates: start: 2014
  16. VANCOMYCIN [Concomitant]
     Active Substance: VANCOMYCIN
     Indication: WOUND INFECTION
     Dosage: ON DAYS 10 TO 13
     Route: 042
  17. VANCOMYCIN [Concomitant]
     Active Substance: VANCOMYCIN
     Dosage: ON DAY 22
     Route: 042
  18. COLISTIN [Concomitant]
     Active Substance: COLISTIN
     Dosage: ON DAY 41, 300MG IV LOADING DOSE
     Route: 042
  19. COLECALCIFEROL [Concomitant]
     Active Substance: CHOLECALCIFEROL
     Indication: VITAMIN D DEFICIENCY
     Dosage: MIDDAY
     Route: 048
     Dates: start: 2014
  20. MAGNESIUM ASPARTATE [Concomitant]
     Active Substance: MAGNESIUM ASPARTATE
     Indication: CONSTIPATION
     Dosage: WITH FOOD
     Route: 048
     Dates: start: 2014
  21. PARACETAMOL [Concomitant]
     Active Substance: ACETAMINOPHEN
     Indication: BACK PAIN
     Dosage: 1000 MG, PRN6
     Route: 048
     Dates: start: 2014
  22. PREGABALIN. [Concomitant]
     Active Substance: PREGABALIN
     Indication: BACK PAIN
     Dosage: 75 MG, QD
     Route: 048
     Dates: start: 2018, end: 20200222
  23. BUDESONIDE;FORMOTEROL [Concomitant]
     Active Substance: BUDESONIDE\FORMOTEROL
     Indication: ASTHMA
     Dosage: 400MCG?12MCG
     Route: 065
     Dates: start: 2014
  24. IRBESARTAN HYDROCHLOROTHIAZIDE [Concomitant]
     Active Substance: HYDROCHLOROTHIAZIDE\IRBESARTAN
     Indication: HYPERTENSION
     Dosage: 300 MG ? 25 MG MORNING
     Route: 048
     Dates: start: 2014, end: 20200313
  25. MOXONIDINE [Concomitant]
     Active Substance: MOXONIDINE
     Indication: HYPERTENSION
     Dosage: MORNING
     Route: 048
     Dates: start: 2014
  26. RISEDRONATE SODIUM. [Concomitant]
     Active Substance: RISEDRONATE SODIUM
     Indication: OSTEOPOROSIS
     Dosage: ON FRI
     Route: 048
     Dates: start: 2014
  27. TAZOBACTAM SODIUM AND PIPERACILLIN SODIUM [Concomitant]
     Active Substance: PIPERACILLIN SODIUM\TAZOBACTAM SODIUM
     Dosage: 1 {DF}, PRN8
     Route: 042
     Dates: start: 20200221, end: 20200310
  28. POTASSIUM CHLORIDE. [Concomitant]
     Active Substance: POTASSIUM CHLORIDE
     Indication: HYPOKALAEMIA
     Dosage: 600 MG, 1 PER 12 HOUR
     Route: 065
     Dates: start: 20200323
  29. COLISTIN [Concomitant]
     Active Substance: COLISTIN
     Dosage: 110 MG, BID
     Route: 042
  30. CEFIDEROCOL. [Suspect]
     Active Substance: CEFIDEROCOL
     Dosage: 1.5 G, 1 PER 8 HOUR
     Route: 041
     Dates: start: 20200414, end: 20200419
  31. CEFAZOLIN [Concomitant]
     Active Substance: CEFAZOLIN
     Indication: PROPHYLAXIS
     Dosage: UNK
     Route: 065
  32. TIGECYCLINE. [Concomitant]
     Active Substance: TIGECYCLINE
     Dosage: ON DAY 41, 100MG IV LOADING DOSE
     Route: 042

REACTIONS (1)
  - Tubulointerstitial nephritis [Recovered/Resolved]

NARRATIVE: CASE EVENT DATE: 20200409
